FAERS Safety Report 8142118-6 (Version None)
Quarter: 2012Q1

REPORT INFORMATION
  Report Type: 
  Country: None (occurrence: None)
  Receive Date: 20120216
  Receipt Date: 20120213
  Transmission Date: 20120608
  Serious: Yes (Other)
  Sender: FDA-Public Use
  Company Number: US-PFIZER INC-2012023293

PATIENT
  Sex: Female
  Weight: 62.132 kg

DRUGS (8)
  1. CHANTIX [Suspect]
     Dosage: UNK
     Dates: start: 20120101
  2. CHANTIX [Suspect]
     Indication: SMOKING CESSATION THERAPY
     Dosage: 0.5 MG, 1X/DAY
     Route: 048
     Dates: start: 20120124, end: 20120101
  3. DIAZEPAM [Concomitant]
     Indication: ANXIETY
     Dosage: 10 MG, 2X/DAY
     Route: 048
  4. ALBUTEROL [Concomitant]
     Indication: CHRONIC OBSTRUCTIVE PULMONARY DISEASE
     Dosage: UNK
  5. LIPITOR [Concomitant]
     Indication: BLOOD CHOLESTEROL INCREASED
     Dosage: 40 MG, UNK
  6. PULMICORT-100 [Concomitant]
     Indication: CHRONIC OBSTRUCTIVE PULMONARY DISEASE
     Dosage: UNK
  7. PREMARIN [Concomitant]
     Dosage: 0.625 MG, UNK
  8. OXYCODONE [Concomitant]
     Indication: PAIN
     Dosage: 5 MG, 2X/DAY AS NEEDED
     Route: 048

REACTIONS (10)
  - TOBACCO USER [None]
  - DEPRESSION [None]
  - OROPHARYNGEAL PLAQUE [None]
  - HEADACHE [None]
  - FEELING ABNORMAL [None]
  - DRUG INEFFECTIVE [None]
  - MENTAL DISORDER [None]
  - THINKING ABNORMAL [None]
  - EMOTIONAL DISORDER [None]
  - STRESS [None]
